FAERS Safety Report 6322715-0 (Version None)
Quarter: 2009Q3

REPORT INFORMATION
  Report Type: 
  Country: None (occurrence: None)
  Receive Date: 20090824
  Receipt Date: 20090309
  Transmission Date: 20100115
  Serious: No
  Sender: FDA-Public Use
  Company Number: US-ABBOTT-09P-163-0561736-00

PATIENT
  Sex: Female

DRUGS (15)
  1. NIASPAN [Suspect]
     Indication: BLOOD CHOLESTEROL INCREASED
     Dosage: EVERY NIGHT
     Route: 048
  2. HYDROCHLOROTHIAZIDE [Concomitant]
     Indication: DRUG USE FOR UNKNOWN INDICATION
  3. LISINOPRIL [Concomitant]
     Indication: DRUG USE FOR UNKNOWN INDICATION
  4. ALBUTEROL [Concomitant]
     Indication: DRUG USE FOR UNKNOWN INDICATION
  5. ADVAIR HFA [Concomitant]
     Indication: DRUG USE FOR UNKNOWN INDICATION
  6. METFORMIN HCL [Concomitant]
     Indication: DRUG USE FOR UNKNOWN INDICATION
  7. ATROVENT [Concomitant]
     Indication: DRUG USE FOR UNKNOWN INDICATION
     Dosage: INHALATION
  8. CELEXA [Concomitant]
     Indication: DRUG USE FOR UNKNOWN INDICATION
  9. SPIREMA [Concomitant]
     Indication: DRUG USE FOR UNKNOWN INDICATION
  10. ASPIRIN [Concomitant]
     Indication: DRUG USE FOR UNKNOWN INDICATION
     Dosage: 81
  11. PEPCID [Concomitant]
     Indication: DRUG USE FOR UNKNOWN INDICATION
  12. VYTORIN [Concomitant]
     Indication: DRUG USE FOR UNKNOWN INDICATION
  13. VIT C [Concomitant]
     Indication: DRUG USE FOR UNKNOWN INDICATION
  14. LIPOFLAVINOID [Concomitant]
     Indication: DRUG USE FOR UNKNOWN INDICATION
  15. FLAX OIL [Concomitant]
     Indication: DRUG USE FOR UNKNOWN INDICATION

REACTIONS (2)
  - BLOOD GLUCOSE INCREASED [None]
  - CHEST DISCOMFORT [None]
